FAERS Safety Report 4607883-0 (Version None)
Quarter: 2005Q1

REPORT INFORMATION
  Report Type: 
  Country: None (occurrence: None)
  Receive Date: 20050310
  Receipt Date: 20050225
  Transmission Date: 20050727
  Serious: No
  Sender: FDA-Public Use
  Company Number: 2005AP01391

PATIENT
  Age: 77 Year
  Sex: Male

DRUGS (4)
  1. CASODEX [Suspect]
     Indication: PROSTATE CANCER
     Dosage: 80 MG DAILY PO
     Route: 048
     Dates: start: 20030101, end: 20040409
  2. CASODEX [Suspect]
     Indication: PROSTATE CANCER
     Dosage: 80 MG DAILY PO
     Route: 048
     Dates: start: 20040927, end: 20041018
  3. LEUPLIN [Concomitant]
  4. ANTI-HYPERTENSIVE DRUGS [Concomitant]

REACTIONS (4)
  - AGGRESSION [None]
  - GYNAECOMASTIA [None]
  - MENTAL DISORDER [None]
  - PRURITUS GENITAL [None]
